FAERS Safety Report 9784955 (Version 2)
Quarter: 2014Q1

REPORT INFORMATION
  Report Type: Spontaneous
  Country: JP (occurrence: JP)
  Receive Date: 20131227
  Receipt Date: 20140113
  Transmission Date: 20141002
  Serious: Yes (Hospitalization)
  Sender: FDA-Public Use
  Company Number: JP-AMGEN-JPNSP2013090847

PATIENT
  Age: 90 Year
  Sex: Female
  Weight: 74 kg

DRUGS (2)
  1. PRALIA [Suspect]
     Indication: OSTEOPOROSIS
     Route: 058
     Dates: start: 20131126
  2. EDIROL [Concomitant]
     Route: 048
     Dates: start: 20131122

REACTIONS (2)
  - Hypothermia [Recovered/Resolved]
  - Hypocalcaemia [Recovered/Resolved]
